FAERS Safety Report 6463545-9 (Version None)
Quarter: 2009Q4

REPORT INFORMATION
  Report Type: 
  Country: None (occurrence: None)
  Receive Date: 20091123
  Receipt Date: 20091109
  Transmission Date: 20100525
  Serious: Yes (Other)
  Sender: FDA-Public Use
  Company Number: 1000010131

PATIENT
  Sex: Male

DRUGS (2)
  1. MEMANTINE HCL [Suspect]
  2. ANTI-PARKINSON DRUGS [Suspect]
     Indication: PARKINSON'S DISEASE

REACTIONS (2)
  - DRUG INTERACTION [None]
  - PSYCHOTIC BEHAVIOUR [None]
